FAERS Safety Report 15844624 (Version 1)
Quarter: 2019Q1

REPORT INFORMATION
  Report Type: Spontaneous
  Country: US (occurrence: US)
  Receive Date: 20190118
  Receipt Date: 20190118
  Transmission Date: 20190417
  Serious: No
  Sender: FDA-Public Use
  Company Number: US-JNJFOC-20190104149

PATIENT
  Age: 7 Year
  Sex: Female
  Weight: 28.58 kg

DRUGS (1)
  1. CHILDRENS TYLENOL [Suspect]
     Active Substance: ACETAMINOPHEN
     Indication: NASOPHARYNGITIS
     Route: 048
     Dates: end: 20181206

REACTIONS (1)
  - Vomiting [Recovered/Resolved]

NARRATIVE: CASE EVENT DATE: 20181206
